FAERS Safety Report 18138415 (Version 1)
Quarter: 2020Q3

REPORT INFORMATION
  Report Type: Spontaneous
  Country: US (occurrence: US)
  Receive Date: 20200812
  Receipt Date: 20200812
  Transmission Date: 20201103
  Serious: Yes (Other)
  Sender: FDA-Public Use
  Company Number: US-AUROBINDO-AUR-APL-2020-038405

PATIENT
  Age: 20 Year
  Sex: Female

DRUGS (3)
  1. TRANEXAMIC ACID. [Suspect]
     Active Substance: TRANEXAMIC ACID
     Indication: POSTPARTUM HAEMORRHAGE
     Dosage: 1 GRAM
     Route: 042
  2. LACTATED RINGERS SOLUTION [Suspect]
     Active Substance: CALCIUM CHLORIDE\POTASSIUM CHLORIDE\SODIUM CHLORIDE\SODIUM LACTATE
     Indication: PRODUCT USED FOR UNKNOWN INDICATION
     Dosage: 100 MILLILITER
     Route: 042
  3. IRON [Suspect]
     Active Substance: IRON
     Indication: IRON DEFICIENCY ANAEMIA
     Dosage: UNK
     Route: 065

REACTIONS (2)
  - Uterine atony [Unknown]
  - Maternal exposure during pregnancy [Unknown]
